FAERS Safety Report 18123896 (Version 2)
Quarter: 2020Q3

REPORT INFORMATION
  Report Type: Spontaneous
  Country: SE (occurrence: SE)
  Receive Date: 20200807
  Receipt Date: 20200807
  Transmission Date: 20201103
  Serious: Yes (Other)
  Sender: FDA-Public Use
  Company Number: SE-AMGEN-SWESP2020125960

PATIENT
  Age: 79 Year
  Sex: Male

DRUGS (1)
  1. PROLIA [Suspect]
     Active Substance: DENOSUMAB
     Indication: OSTEOPOROSIS
     Dosage: UNK
     Route: 042
     Dates: start: 201702

REACTIONS (1)
  - Exposed bone in jaw [Not Recovered/Not Resolved]

NARRATIVE: CASE EVENT DATE: 20200710
